FAERS Safety Report 20249032 (Version 1)
Quarter: 2021Q4

REPORT INFORMATION
  Report Type: Spontaneous
  Country: US (occurrence: None)
  Receive Date: 20211228
  Receipt Date: 20211228
  Transmission Date: 20220303
  Serious: Yes (Death)
  Sender: FDA-Public Use
  Company Number: None

PATIENT
  Age: 70 Year
  Sex: Female
  Weight: 68.2 kg

DRUGS (5)
  1. KISQALI [Suspect]
     Active Substance: RIBOCICLIB
     Dosage: FREQUENCY : DAILY;?
     Route: 048
     Dates: start: 20211216
  2. PRAVASTATIN [Concomitant]
     Active Substance: PRAVASTATIN
  3. METOPROLOL SUC [Concomitant]
  4. NORCO [Concomitant]
     Active Substance: ACETAMINOPHEN\HYDROCODONE BITARTRATE
  5. PAROXETINE [Concomitant]
     Active Substance: PAROXETINE

REACTIONS (1)
  - Death [None]

NARRATIVE: CASE EVENT DATE: 20211227
